FAERS Safety Report 20581074 (Version 1)
Quarter: 2022Q1

REPORT INFORMATION
  Report Type: Report from Study
  Country: CA (occurrence: CA)
  Receive Date: 20220311
  Receipt Date: 20220311
  Transmission Date: 20220423
  Serious: Yes (Other)
  Sender: FDA-Public Use
  Company Number: CA-UCBSA-2022003593

PATIENT
  Sex: Male

DRUGS (5)
  1. BRIVARACETAM [Suspect]
     Active Substance: BRIVARACETAM
     Indication: Epilepsy
     Dosage: 25 MILLIGRAM, 2X/DAY (2.5ML BID)
     Dates: start: 20220113
  2. BRIVARACETAM [Suspect]
     Active Substance: BRIVARACETAM
     Indication: Cerebral palsy
     Dosage: ONE OR TWO DOSES
  3. BRIVARACETAM [Suspect]
     Active Substance: BRIVARACETAM
     Indication: Off label use
  4. CLOBAZAM [Concomitant]
     Active Substance: CLOBAZAM
     Indication: Product used for unknown indication
     Dosage: 20 MILLIGRAM, 2X/DAY (BID)
  5. PHENOBARBITAL [Concomitant]
     Active Substance: PHENOBARBITAL
     Indication: Product used for unknown indication
     Dosage: 12.5 MILLILITER, 2X/DAY (BID)

REACTIONS (3)
  - Seizure [Unknown]
  - Tremor [Unknown]
  - Off label use [Unknown]
